FAERS Safety Report 10284388 (Version 2)
Quarter: 2014Q3

REPORT INFORMATION
  Report Type: Spontaneous
  Country: SE (occurrence: SE)
  Receive Date: 20140708
  Receipt Date: 20140812
  Transmission Date: 20150326
  Serious: No
  Sender: FDA-Public Use
  Company Number: SE-JNJFOC-20140618515

PATIENT

DRUGS (2)
  1. BUPRENORPHINE [Suspect]
     Active Substance: BUPRENORPHINE
     Indication: PAIN
     Route: 065
  2. FENTANYL TRANSDERMAL SYSTEM [Suspect]
     Active Substance: FENTANYL
     Indication: PAIN
     Route: 062

REACTIONS (16)
  - Withdrawal syndrome [Unknown]
  - Pain [Unknown]
  - Fatigue [Unknown]
  - Anxiety [Unknown]
  - Incorrect dose administered [Unknown]
  - Drug prescribing error [Unknown]
  - Inappropriate schedule of drug administration [Unknown]
  - Confusional state [Unknown]
  - Dizziness [Unknown]
  - Incorrect route of drug administration [Unknown]
  - Discomfort [Unknown]
  - Treatment noncompliance [Unknown]
  - Drug dose omission [Unknown]
  - Tremor [Unknown]
  - Wrong technique in drug usage process [Unknown]
  - Medication error [Unknown]
